FAERS Safety Report 4641437-5 (Version None)
Quarter: 2005Q2

REPORT INFORMATION
  Report Type: 
  Country: None (occurrence: None)
  Receive Date: 20050420
  Receipt Date: 20050420
  Transmission Date: 20051028
  Serious: Yes (Hospitalization)
  Sender: FDA-Public Use
  Company Number: None

PATIENT
  Age: 73 Year
  Sex: Male
  Weight: 95.709 kg

DRUGS (1)
  1. WARFARIN [Suspect]
     Indication: HEART VALVE REPLACEMENT
     Dosage: 7.5MG  DAILY ORAL
     Route: 048
     Dates: start: 19850101, end: 20050419

REACTIONS (1)
  - GASTROINTESTINAL HAEMORRHAGE [None]
